FAERS Safety Report 12425792 (Version 3)
Quarter: 2017Q1

REPORT INFORMATION
  Report Type: Spontaneous
  Country: DK (occurrence: DK)
  Receive Date: 20160601
  Receipt Date: 20170127
  Transmission Date: 20170428
  Serious: Yes (Hospitalization, Disabling)
  Sender: FDA-Public Use
  Company Number: DK-JNJFOC-20160527114

PATIENT
  Age: 47 Year
  Sex: Female

DRUGS (2)
  1. ALMOGRAN [Suspect]
     Active Substance: ALMOTRIPTAN MALATE
     Indication: MIGRAINE
     Dosage: 2-3 TIMES PER WEEKLY (WHEN ATTACK)
     Route: 048
     Dates: start: 20110401, end: 201203
  2. SIBELIUM [Concomitant]
     Active Substance: FLUNARIZINE
     Indication: PRODUCT USED FOR UNKNOWN INDICATION
     Dosage: AT BED TIME
     Route: 065

REACTIONS (17)
  - Cerebral thrombosis [Unknown]
  - Hemiparesis [Unknown]
  - Gait disturbance [Unknown]
  - Fatigue [Unknown]
  - Disorientation [Unknown]
  - Monoplegia [Unknown]
  - Memory impairment [Unknown]
  - Mental disorder [Unknown]
  - General physical health deterioration [Unknown]
  - Pain [Unknown]
  - Cognitive disorder [Unknown]
  - Neurologic neglect syndrome [Unknown]
  - Irritability [Unknown]
  - Disturbance in attention [Unknown]
  - Peroneal nerve palsy [Unknown]
  - Hemiplegia [Unknown]
  - Mental fatigue [Unknown]

NARRATIVE: CASE EVENT DATE: 20120301
